FAERS Safety Report 4903943-5 (Version None)
Quarter: 2006Q1

REPORT INFORMATION
  Report Type: 
  Country: None (occurrence: None)
  Receive Date: 20060208
  Receipt Date: 20050729
  Transmission Date: 20060701
  Serious: No
  Sender: FDA-Public Use
  Company Number: US-GLAXOSMITHKLINE-A0568283A

PATIENT
  Age: 60 Year
  Sex: Female

DRUGS (5)
  1. PAROXETINE HCL [Suspect]
     Dosage: 30MG PER DAY
     Route: 048
  2. ALPRAZOLAM [Concomitant]
  3. MAXZIDE [Concomitant]
  4. TARKA [Concomitant]
  5. LEVOTHYROXINE SODIUM [Concomitant]

REACTIONS (3)
  - APATHY [None]
  - DRUG INEFFECTIVE [None]
  - FEELING ABNORMAL [None]
